FAERS Safety Report 24168478 (Version 2)
Quarter: 2024Q4

REPORT INFORMATION
  Report Type: Spontaneous
  Country: US (occurrence: US)
  Receive Date: 20240802
  Receipt Date: 20241113
  Transmission Date: 20250115
  Serious: Yes (Death, Hospitalization, Other)
  Sender: JOHNSON AND JOHNSON
  Company Number: US-JNJFOC-20240769343

PATIENT
  Age: 58 Year
  Sex: Male

DRUGS (1)
  1. CARVYKTI [Suspect]
     Active Substance: CILTACABTAGENE AUTOLEUCEL
     Indication: Product used for unknown indication
     Route: 065

REACTIONS (10)
  - Shock [Fatal]
  - Intestinal perforation [Fatal]
  - Erosive duodenitis [Unknown]
  - Intestinal ischaemia [Unknown]
  - Cardiac arrest [Unknown]
  - Haemophagocytic lymphohistiocytosis [Unknown]
  - Immune effector cell-associated neurotoxicity syndrome [Unknown]
  - Cytokine release syndrome [Unknown]
  - Presyncope [Unknown]
  - Gastrointestinal polyp [Unknown]
